FAERS Safety Report 15867005 (Version 1)
Quarter: 2019Q1

REPORT INFORMATION
  Report Type: Spontaneous
  Country: GB (occurrence: GB)
  Receive Date: 20190125
  Receipt Date: 20190125
  Transmission Date: 20190417
  Serious: Yes (Death, Life-Threatening, Other)
  Sender: FDA-Public Use
  Company Number: GB-ACCORD-103238

PATIENT
  Age: 35 Year

DRUGS (1)
  1. CLOZAPINE. [Suspect]
     Active Substance: CLOZAPINE
     Indication: PRODUCT USED FOR UNKNOWN INDICATION

REACTIONS (2)
  - Toxicity to various agents [Fatal]
  - Unresponsive to stimuli [Unknown]
